FAERS Safety Report 23858832 (Version 4)
Quarter: 2024Q2

REPORT INFORMATION
  Report Type: Spontaneous
  Country: US (occurrence: US)
  Receive Date: 20240515
  Receipt Date: 20240531
  Transmission Date: 20240716
  Serious: Yes (Death, Hospitalization, Other)
  Sender: FDA-Public Use
  Company Number: US-002147023-NVSC2024US101989

PATIENT
  Age: 75 Year
  Sex: Female
  Weight: 68.03 kg

DRUGS (1)
  1. KYMRIAH [Suspect]
     Active Substance: TISAGENLECLEUCEL
     Indication: Diffuse large B-cell lymphoma
     Dosage: UNK UNK, ONCE/SINGLE (4.7E8 CAR-POSITIVE VIABLE T-CELLS)
     Route: 042
     Dates: start: 20240506, end: 20240506

REACTIONS (4)
  - Cytokine release syndrome [Not Recovered/Not Resolved]
  - Pyrexia [Recovering/Resolving]
  - Immune effector cell-associated neurotoxicity syndrome [Recovering/Resolving]
  - Death [Fatal]

NARRATIVE: CASE EVENT DATE: 20240507
